FAERS Safety Report 8369348-2 (Version None)
Quarter: 2012Q2

REPORT INFORMATION
  Report Type: 
  Country: None (occurrence: None)
  Receive Date: 20120518
  Receipt Date: 20120507
  Transmission Date: 20120825
  Serious: Yes (Hospitalization, Other)
  Sender: FDA-Public Use
  Company Number: JP-UCBSA-056952

PATIENT
  Sex: Male

DRUGS (4)
  1. KEPPRA [Suspect]
     Route: 048
     Dates: start: 20120410
  2. KEPPRA [Suspect]
     Dosage: UNKNOWN DOSE
     Route: 048
     Dates: start: 20120220
  3. AED (ANTI-EPILEPTIC DRUG) [Concomitant]
  4. KEPPRA [Suspect]
     Route: 048
     Dates: start: 20120315

REACTIONS (3)
  - STATUS EPILEPTICUS [None]
  - CONVULSION [None]
  - ECZEMA [None]
